FAERS Safety Report 13878793 (Version 1)
Quarter: 2017Q3

REPORT INFORMATION
  Report Type: Report from Study
  Country: US (occurrence: US)
  Receive Date: 20170817
  Receipt Date: 20170817
  Transmission Date: 20171127
  Serious: No
  Sender: FDA-Public Use
  Company Number: PHEH2017US024155

PATIENT
  Sex: Female
  Weight: 81.64 kg

DRUGS (1)
  1. IMATINIB [Suspect]
     Active Substance: IMATINIB
     Indication: PRODUCT USED FOR UNKNOWN INDICATION
     Dosage: 100 MG, TID
     Route: 065
     Dates: start: 201703

REACTIONS (10)
  - Headache [Unknown]
  - Fatigue [Unknown]
  - Pain [Unknown]
  - Respiratory rate decreased [Unknown]
  - Fluid retention [Unknown]
  - Night sweats [Unknown]
  - Hypertension [Unknown]
  - Abdominal pain upper [Unknown]
  - Nausea [Unknown]
  - Dizziness [Unknown]
